FAERS Safety Report 4973958-X (Version None)
Quarter: 2006Q2

REPORT INFORMATION
  Report Type: 
  Country: None (occurrence: None)
  Receive Date: 20060410
  Receipt Date: 20060321
  Transmission Date: 20061013
  Serious: Yes (Other)
  Sender: FDA-Public Use
  Company Number: US_0509121783

PATIENT
  Sex: Female

DRUGS (3)
  1. ZYPREXA [Suspect]
     Dosage: 2.5 MG, ORAL
     Route: 048
  2. LEVAQUIN [Concomitant]
  3. ORAL CONTRACEPTIVE NOS (ORAL CONTRACEPTIVE [Concomitant]

REACTIONS (12)
  - BLOOD GLUCOSE FLUCTUATION [None]
  - HAEMATOCRIT DECREASED [None]
  - HAEMOGLOBIN DECREASED [None]
  - HEADACHE [None]
  - HYPERGLYCAEMIC HYPEROSMOLAR NONKETOTIC SYNDROME [None]
  - MONOCYTE COUNT INCREASED [None]
  - RED BLOOD CELL COUNT DECREASED [None]
  - URINARY TRACT INFECTION [None]
  - VISION BLURRED [None]
  - WEIGHT DECREASED [None]
  - WEIGHT INCREASED [None]
  - WHITE BLOOD CELL COUNT DECREASED [None]
